FAERS Safety Report 4441445-3 (Version None)
Quarter: 2004Q3

REPORT INFORMATION
  Report Type: 
  Country: None (occurrence: None)
  Receive Date: 20040728
  Receipt Date: 20040503
  Transmission Date: 20050211
  Serious: No
  Sender: FDA-Public Use
  Company Number: USA040566541

PATIENT
  Age: 34 Year
  Sex: Female
  Weight: 61 kg

DRUGS (3)
  1. STRATTERA [Suspect]
     Indication: ATTENTION DEFICIT/HYPERACTIVITY DISORDER
     Dosage: 50 MG/2 DAY
     Dates: start: 20040426
  2. FISH OIL [Concomitant]
  3. MULTI-VITAMIN [Concomitant]

REACTIONS (4)
  - BRADYPHRENIA [None]
  - DRUG INEFFECTIVE [None]
  - DYSGEUSIA [None]
  - THINKING ABNORMAL [None]
